FAERS Safety Report 7298860-2 (Version None)
Quarter: 2011Q1

REPORT INFORMATION
  Report Type: 
  Country: None (occurrence: None)
  Receive Date: 20110217
  Receipt Date: 20110207
  Transmission Date: 20110831
  Serious: Yes (Hospitalization)
  Sender: FDA-Public Use
  Company Number: JP-ROCHE-757885

PATIENT
  Age: 57 Year
  Sex: Female

DRUGS (3)
  1. TOCILIZUMAB [Suspect]
     Indication: RHEUMATOID ARTHRITIS
     Dosage: SINGLE DOSE
     Route: 065
     Dates: start: 20090801
  2. CELECOXIB [Concomitant]
  3. TOCILIZUMAB [Suspect]
     Route: 065
     Dates: start: 20091216

REACTIONS (2)
  - APHTHOUS STOMATITIS [None]
  - INTESTINAL ULCER [None]
